FAERS Safety Report 5957595-6 (Version None)
Quarter: 2008Q4

REPORT INFORMATION
  Report Type: 
  Country: None (occurrence: None)
  Receive Date: 20081117
  Receipt Date: 20081117
  Transmission Date: 20090506
  Serious: No
  Sender: FDA-Public Use
  Company Number: None

PATIENT
  Age: 50 Year
  Sex: Female

DRUGS (1)
  1. NEURONTIN [Suspect]
     Indication: NEURALGIA
     Dosage: 200 MG 3 X DAY 400 MG NIGHT PO
     Route: 048
     Dates: start: 20080930

REACTIONS (6)
  - INCREASED TENDENCY TO BRUISE [None]
  - OEDEMA [None]
  - OEDEMA PERIPHERAL [None]
  - SKIN DISCOLOURATION [None]
  - SUDDEN ONSET OF SLEEP [None]
  - WEIGHT INCREASED [None]
